FAERS Safety Report 12470752 (Version 1)
Quarter: 2016Q2

REPORT INFORMATION
  Report Type: Spontaneous
  Country: US (occurrence: None)
  Receive Date: 20160615
  Receipt Date: 20160615
  Transmission Date: 20160815
  Serious: Yes (Hospitalization, Other)
  Sender: FDA-Public Use
  Company Number: None

PATIENT
  Age: 71 Year
  Sex: Female
  Weight: 89.81 kg

DRUGS (16)
  1. ELIQUIS [Suspect]
     Active Substance: APIXABAN
     Indication: ATRIAL FIBRILLATION
     Route: 048
     Dates: start: 20151124, end: 20160401
  2. ATENOLOL. [Concomitant]
     Active Substance: ATENOLOL
  3. PRILOSEC [Concomitant]
     Active Substance: OMEPRAZOLE MAGNESIUM
  4. PLAVIX [Concomitant]
     Active Substance: CLOPIDOGREL BISULFATE
  5. BUTAMIDE [Concomitant]
  6. SYNTHROID [Concomitant]
     Active Substance: LEVOTHYROXINE SODIUM
  7. FOLTANX [Concomitant]
  8. REQUIP [Concomitant]
     Active Substance: ROPINIROLE HYDROCHLORIDE
  9. MONTELUKAST [Concomitant]
     Active Substance: MONTELUKAST SODIUM
  10. VELAFAXINEHCL [Concomitant]
  11. ZEMPLAR [Concomitant]
     Active Substance: PARICALCITOL
  12. IMODIUM AD [Concomitant]
     Active Substance: LOPERAMIDE HYDROCHLORIDE
  13. CHOLCACHINE [Concomitant]
  14. REVATIO [Concomitant]
     Active Substance: SILDENAFIL CITRATE
  15. ULORIC [Concomitant]
     Active Substance: FEBUXOSTAT
  16. BABY ASPIRIN [Concomitant]
     Active Substance: ASPIRIN

REACTIONS (4)
  - Blood count abnormal [None]
  - Large intestine polyp [None]
  - Asthenia [None]
  - Haemorrhage [None]

NARRATIVE: CASE EVENT DATE: 20160401
